FAERS Safety Report 7598441-7 (Version None)
Quarter: 2011Q3

REPORT INFORMATION
  Report Type: 
  Country: None (occurrence: None)
  Receive Date: 20110708
  Receipt Date: 20110628
  Transmission Date: 20111222
  Serious: Yes (Hospitalization, Disabling)
  Sender: FDA-Public Use
  Company Number: US-MERCK-0903USA00715

PATIENT
  Age: 60 Year
  Sex: Female
  Weight: 70 kg

DRUGS (5)
  1. VITAMIN D (UNSPECIFIED) [Concomitant]
     Route: 065
  2. VITAMIN D (UNSPECIFIED) [Concomitant]
     Route: 065
  3. FOSAMAX PLUS D [Suspect]
     Route: 065
  4. FOSAMAX [Suspect]
     Indication: OSTEOPOROSIS
     Route: 048
     Dates: start: 20031101, end: 20080401
  5. CENTRUM SILVER [Concomitant]
     Route: 065
     Dates: start: 20080101

REACTIONS (3)
  - OSTEOPOROSIS [None]
  - FEMUR FRACTURE [None]
  - FALL [None]
